FAERS Safety Report 18568322 (Version 1)
Quarter: 2020Q4

REPORT INFORMATION
  Report Type: Spontaneous
  Country: US (occurrence: US)
  Receive Date: 20201130
  Receipt Date: 20201130
  Transmission Date: 20210114
  Serious: Yes (Death)
  Sender: FDA-Public Use
  Company Number: None

PATIENT
  Age: 52 Year
  Sex: Female

DRUGS (5)
  1. TACROLIMUS  1 MG [Suspect]
     Active Substance: TACROLIMUS
     Route: 048
     Dates: start: 20181227
  2. MYFORTIC [Suspect]
     Active Substance: MYCOPHENOLATE SODIUM
     Route: 048
     Dates: start: 20181023
  3. MYFORTIC [Suspect]
     Active Substance: MYCOPHENOLATE SODIUM
  4. TACROLIMUS. [Concomitant]
     Active Substance: TACROLIMUS
  5. MYCOPHENOLIC [Concomitant]
     Active Substance: MYCOPHENOLIC ACID

REACTIONS (1)
  - Death [None]

NARRATIVE: CASE EVENT DATE: 2020
